FAERS Safety Report 6794000-4 (Version None)
Quarter: 2010Q2

REPORT INFORMATION
  Report Type: 
  Country: None (occurrence: None)
  Receive Date: 20100624
  Receipt Date: 20070330
  Transmission Date: 20101027
  Serious: Yes (Hospitalization, Other)
  Sender: FDA-Public Use
  Company Number: US-PFIZER INC-ENC200700046

PATIENT
  Sex: Female
  Weight: 91.4 kg

DRUGS (7)
  1. ARGATROBAN [Suspect]
     Indication: HEPARIN-INDUCED THROMBOCYTOPENIA
     Dosage: 2 MCG/KG/MIN,FREQUENCY:  WITH FREQUENCT TITRATION
     Route: 042
     Dates: start: 20070325, end: 20070331
  2. LINEZOLID [Suspect]
     Indication: URINARY TRACT INFECTION
     Dosage: FREQUENCY:  BID Q12 HRS
     Dates: start: 20070327
  3. FAMOTIDINE [Concomitant]
     Dates: start: 20070322
  4. WARFARIN SODIUM [Concomitant]
     Dates: start: 20070322
  5. IMMUNE GLOBULIN NOS [Concomitant]
     Dates: start: 20070322, end: 20070324
  6. METHYLPREDNISOLONE SODIUM SUCCINATE [Concomitant]
  7. HEPARIN SODIUM [Concomitant]
     Dates: start: 20070306, end: 20070325

REACTIONS (2)
  - COAGULATION TIME ABNORMAL [None]
  - DRUG INTERACTION [None]
